FAERS Safety Report 10353730 (Version 1)
Quarter: 2014Q3

REPORT INFORMATION
  Report Type: Spontaneous
  Country: US (occurrence: US)
  Receive Date: 20140731
  Receipt Date: 20140731
  Transmission Date: 20150326
  Serious: Yes (Hospitalization, Other)
  Sender: FDA-Public Use
  Company Number: US-ELI_LILLY_AND_COMPANY-US201407008641

PATIENT
  Sex: Female

DRUGS (6)
  1. ASPIRIN. [Concomitant]
     Active Substance: ASPIRIN
     Dosage: 325 MG, QD
  2. COUMADIN [Suspect]
     Active Substance: WARFARIN SODIUM
     Indication: PRODUCT USED FOR UNKNOWN INDICATION
     Dosage: 7 MG, UNK
     Route: 065
  3. LANTUS [Suspect]
     Active Substance: INSULIN GLARGINE
     Indication: PRODUCT USED FOR UNKNOWN INDICATION
     Dosage: UNK, EACH EVENING
     Route: 065
  4. DIGOXIN. [Concomitant]
     Active Substance: DIGOXIN
  5. INSULIN HUMAN [Suspect]
     Active Substance: INSULIN HUMAN
     Indication: TYPE 2 DIABETES MELLITUS
     Dosage: UNK
     Route: 065
     Dates: end: 2012
  6. PREDNISONE. [Concomitant]
     Active Substance: PREDNISONE

REACTIONS (13)
  - Atrial fibrillation [Unknown]
  - Asthma [Unknown]
  - Insomnia [Unknown]
  - Arthralgia [Unknown]
  - Bladder disorder [Unknown]
  - Retinal disorder [Unknown]
  - Myocardial infarction [Unknown]
  - Pulmonary thrombosis [Unknown]
  - Bronchitis [Unknown]
  - Eye haemorrhage [Unknown]
  - Blindness [Not Recovered/Not Resolved]
  - Nephrolithiasis [Unknown]
  - Thrombosis [Unknown]

NARRATIVE: CASE EVENT DATE: 2005
